FAERS Safety Report 20764620 (Version 1)
Quarter: 2022Q2

REPORT INFORMATION
  Report Type: Spontaneous
  Country: US (occurrence: US)
  Receive Date: 20220428
  Receipt Date: 20220428
  Transmission Date: 20220721
  Serious: No
  Sender: FDA-Public Use
  Company Number: US-PFIZER INC-2021808683

PATIENT
  Age: 43 Year
  Sex: Female
  Weight: 86.18 kg

DRUGS (3)
  1. DIFLUCAN [Suspect]
     Active Substance: FLUCONAZOLE
  2. FLUOXIBENE [Concomitant]
     Indication: Depression
     Dosage: 25 MG
  3. ACYCLOVIR [Concomitant]
     Active Substance: ACYCLOVIR
     Indication: Genital herpes
     Dosage: 50 MG

REACTIONS (1)
  - Drug ineffective [Unknown]
